FAERS Safety Report 8504605-8 (Version None)
Quarter: 2012Q3

REPORT INFORMATION
  Report Type: 
  Country: None (occurrence: None)
  Receive Date: 20120711
  Receipt Date: 20120702
  Transmission Date: 20120928
  Serious: Yes (Hospitalization)
  Sender: FDA-Public Use
  Company Number: OM-ROCHE-1084847

PATIENT
  Sex: Female

DRUGS (14)
  1. OMEPRAZOLE [Concomitant]
  2. BUDESONIDE [Concomitant]
  3. FERROUS SULFATE TAB [Concomitant]
  4. ALENDRONATE SODIUM [Concomitant]
  5. THEOPHYLLINE [Concomitant]
  6. PREDNISONE [Concomitant]
  7. FLUTICASONE PROPIONATE/SALMETEROL [Concomitant]
  8. DOMPERIDONE [Concomitant]
  9. CALCIUM CARBONATE [Concomitant]
  10. ALFACALCIDOL [Concomitant]
  11. HYDROXYCHLOROQUINE SULFATE [Concomitant]
  12. AZATHIOPRINE [Concomitant]
  13. XOLAIR [Suspect]
     Indication: ASTHMA
     Route: 058
     Dates: start: 20100920, end: 20100920
  14. IPRATROPIUM BROMIDE [Concomitant]

REACTIONS (5)
  - SUFFOCATION FEELING [None]
  - PALPITATIONS [None]
  - DYSPNOEA [None]
  - COUGH [None]
  - TACHYCARDIA [None]
